FAERS Safety Report 22910019 (Version 2)
Quarter: 2024Q1

REPORT INFORMATION
  Report Type: Other
  Country: EG (occurrence: None)
  Receive Date: 20230906
  Receipt Date: 20240208
  Transmission Date: 20240409
  Serious: Yes (Other)
  Sender: FDA-Public Use
  Company Number: EG-ROCHE-3414850

PATIENT
  Age: 22 Year
  Sex: Female
  Weight: 56 kg

DRUGS (1)
  1. OCREVUS [Suspect]
     Active Substance: OCRELIZUMAB
     Indication: Multiple sclerosis
     Route: 042
     Dates: start: 20220627

REACTIONS (7)
  - Benign breast neoplasm [Not Recovered/Not Resolved]
  - Multiple sclerosis [Not Recovered/Not Resolved]
  - Infusion related reaction [Recovered/Resolved]
  - Eye abscess [Not Recovered/Not Resolved]
  - Oedema [Not Recovered/Not Resolved]
  - Dyspnoea [Recovered/Resolved]
  - Pyrexia [Recovered/Resolved]

NARRATIVE: CASE EVENT DATE: 20240124
